FAERS Safety Report 21802418 (Version 4)
Quarter: 2023Q1

REPORT INFORMATION
  Report Type: Spontaneous
  Country: SE (occurrence: SE)
  Receive Date: 20221231
  Receipt Date: 20230306
  Transmission Date: 20230418
  Serious: Yes (Death, Life-Threatening, Hospitalization, Other)
  Sender: FDA-Public Use
  Company Number: SE-PFIZER INC-202201399911

PATIENT
  Age: 53 Year
  Sex: Male

DRUGS (18)
  1. METHYLPREDNISOLONE SODIUM SUCCINATE [Suspect]
     Active Substance: METHYLPREDNISOLONE SODIUM SUCCINATE
     Indication: Acute disseminated encephalomyelitis
     Dosage: 1 G, DAILY FOR 5 DAYS
     Route: 042
  2. METHYLPREDNISOLONE SODIUM SUCCINATE [Suspect]
     Active Substance: METHYLPREDNISOLONE SODIUM SUCCINATE
     Indication: Ischaemic stroke
     Dosage: TWO CYCLES DURING DAY 5-16
     Route: 042
  3. METHYLPREDNISOLONE SODIUM SUCCINATE [Suspect]
     Active Substance: METHYLPREDNISOLONE SODIUM SUCCINATE
     Indication: Encephalitis
  4. DALTEPARIN SODIUM [Suspect]
     Active Substance: DALTEPARIN SODIUM
     Indication: Encephalitis
     Dosage: UNK
  5. DALTEPARIN SODIUM [Suspect]
     Active Substance: DALTEPARIN SODIUM
     Indication: Acute disseminated encephalomyelitis
  6. DALTEPARIN SODIUM [Suspect]
     Active Substance: DALTEPARIN SODIUM
     Indication: Ischaemic stroke
  7. PREDNISOLONE [Suspect]
     Active Substance: PREDNISOLONE
     Indication: Acute disseminated encephalomyelitis
     Dosage: 50 MG, DAILY WITH SLOW TAPERING ADMINISTRATED FROM DAY SEVENTEEN
     Route: 048
  8. PREDNISOLONE [Suspect]
     Active Substance: PREDNISOLONE
     Indication: Ischaemic stroke
  9. PREDNISOLONE [Suspect]
     Active Substance: PREDNISOLONE
     Indication: Encephalitis
  10. ACYCLOVIR [Suspect]
     Active Substance: ACYCLOVIR
     Indication: Encephalitis
     Dosage: UNK
  11. ACYCLOVIR [Suspect]
     Active Substance: ACYCLOVIR
     Indication: Acute disseminated encephalomyelitis
  12. ACYCLOVIR [Suspect]
     Active Substance: ACYCLOVIR
     Indication: Ischaemic stroke
  13. BETAMETHASONE [Suspect]
     Active Substance: BETAMETHASONE
     Indication: Acute disseminated encephalomyelitis
     Dosage: 32 MG, DAILY, DAY 2-4
     Route: 042
  14. BETAMETHASONE [Suspect]
     Active Substance: BETAMETHASONE
     Indication: Encephalitis
  15. BETAMETHASONE [Suspect]
     Active Substance: BETAMETHASONE
     Indication: Ischaemic stroke
  16. HUMAN IMMUNOGLOBULIN G [Suspect]
     Active Substance: HUMAN IMMUNOGLOBULIN G
     Indication: Encephalitis
     Dosage: 2 MG/KG, DAILY
     Route: 042
  17. HUMAN IMMUNOGLOBULIN G [Suspect]
     Active Substance: HUMAN IMMUNOGLOBULIN G
     Indication: Acute disseminated encephalomyelitis
  18. HUMAN IMMUNOGLOBULIN G [Suspect]
     Active Substance: HUMAN IMMUNOGLOBULIN G
     Indication: Ischaemic stroke

REACTIONS (1)
  - Drug ineffective [Fatal]
